FAERS Safety Report 6843938-8 (Version None)
Quarter: 2010Q3

REPORT INFORMATION
  Report Type: 
  Country: None (occurrence: None)
  Receive Date: 20100714
  Receipt Date: 20100714
  Transmission Date: 20110219
  Serious: Yes (Hospitalization)
  Sender: FDA-Public Use
  Company Number: None

PATIENT
  Age: 60 Year
  Sex: Female

DRUGS (1)
  1. MORPHINE [Suspect]
     Indication: PAIN
     Dates: start: 20100503, end: 20100505

REACTIONS (7)
  - DIZZINESS [None]
  - DYSARTHRIA [None]
  - EXPIRED DRUG ADMINISTERED [None]
  - FALL [None]
  - MENTAL STATUS CHANGES [None]
  - PAIN [None]
  - VISION BLURRED [None]
